FAERS Safety Report 20770709 (Version 1)
Quarter: 2022Q2

REPORT INFORMATION
  Report Type: Spontaneous
  Country: US (occurrence: None)
  Receive Date: 20220426
  Receipt Date: 20220426
  Transmission Date: 20220720
  Serious: Yes (unspecified)
  Sender: FDA-Public Use
  Company Number: None

PATIENT
  Age: 26 Year
  Sex: Male
  Weight: 75.6 kg

DRUGS (1)
  1. HERBALS [Suspect]
     Active Substance: HERBALS
     Indication: Molluscum contagiosum
     Dosage: OTHER QUANTITY : 1 PATCH(ES);?
     Dates: start: 20220417, end: 20220420

REACTIONS (5)
  - Application site pruritus [None]
  - Application site swelling [None]
  - Application site vesicles [None]
  - Application site scar [None]
  - Application site discolouration [None]

NARRATIVE: CASE EVENT DATE: 20220422
